FAERS Safety Report 18876052 (Version 1)
Quarter: 2021Q1

REPORT INFORMATION
  Report Type: Spontaneous
  Country: UA (occurrence: UA)
  Receive Date: 20210210
  Receipt Date: 20210210
  Transmission Date: 20210420
  Serious: Yes (Hospitalization, Other)
  Sender: FDA-Public Use
  Company Number: UA-B.I. PHARMACEUTICALS,INC./RIDGEFIELD-2020-BI-065473

PATIENT
  Age: 55 Year
  Sex: Female

DRUGS (2)
  1. LANTUS [Concomitant]
     Active Substance: INSULIN GLARGINE
     Indication: DIABETES MELLITUS
     Dosage: 30 UNITS
  2. SYNJARDY [Suspect]
     Active Substance: EMPAGLIFLOZIN\METFORMIN HYDROCHLORIDE
     Indication: DIABETES MELLITUS
     Route: 048
     Dates: start: 201912

REACTIONS (1)
  - Ketoacidosis [Recovered/Resolved]
